FAERS Safety Report 18579010 (Version 5)
Quarter: 2021Q1

REPORT INFORMATION
  Report Type: Spontaneous
  Country: IT (occurrence: IT)
  Receive Date: 20201204
  Receipt Date: 20210218
  Transmission Date: 20210419
  Serious: Yes (Other)
  Sender: FDA-Public Use
  Company Number: IT-ABBVIE-20K-083-3678366-00

PATIENT
  Age: 75 Year
  Sex: Male

DRUGS (3)
  1. IMBRUVICA [Suspect]
     Active Substance: IBRUTINIB
     Indication: CHRONIC LYMPHOCYTIC LEUKAEMIA
     Route: 048
     Dates: start: 20170515
  2. IMBRUVICA [Suspect]
     Active Substance: IBRUTINIB
     Route: 048
  3. IMBRUVICA [Suspect]
     Active Substance: IBRUTINIB
     Route: 048

REACTIONS (6)
  - Bladder cancer [Not Recovered/Not Resolved]
  - Chronic lymphocytic leukaemia [Unknown]
  - Prostatic operation [Unknown]
  - Therapeutic product effect incomplete [Unknown]
  - Malignant neoplasm progression [Not Recovered/Not Resolved]
  - Aspergillus infection [Not Recovered/Not Resolved]
